FAERS Safety Report 12350780 (Version 1)
Quarter: 2016Q2

REPORT INFORMATION
  Report Type: Report from Study
  Country: JP (occurrence: JP)
  Receive Date: 20160510
  Receipt Date: 20160510
  Transmission Date: 20160815
  Serious: Yes (Other)
  Sender: FDA-Public Use
  Company Number: JP-ROCHE-1751112

PATIENT

DRUGS (11)
  1. PREDNISOLONE. [Suspect]
     Active Substance: PREDNISOLONE
     Indication: DIFFUSE LARGE B-CELL LYMPHOMA
     Dosage: 100 MG/BODY/DAY ON DAY 1-5
     Route: 065
  2. RITUXIMAB [Suspect]
     Active Substance: RITUXIMAB
     Indication: DIFFUSE LARGE B-CELL LYMPHOMA
     Route: 042
  3. FILGRASTIM [Suspect]
     Active Substance: FILGRASTIM
     Indication: PRODUCT USED FOR UNKNOWN INDICATION
     Dosage: 600 MCG/BODY/DAY, DAILY
     Route: 065
  4. CYCLOPHOSPHAMIDE. [Suspect]
     Active Substance: CYCLOPHOSPHAMIDE
     Indication: DIFFUSE LARGE B-CELL LYMPHOMA
     Dosage: ON DAY 1
     Route: 065
  5. RANIMUSTINE [Suspect]
     Active Substance: RANIMUSTINE
     Indication: PRODUCT USED FOR UNKNOWN INDICATION
     Dosage: CONDITIONING REGIMEN, FOR 1 H ON DAY -8 AND -3
     Route: 065
  6. DOXORUBICIN [Suspect]
     Active Substance: DOXORUBICIN
     Indication: DIFFUSE LARGE B-CELL LYMPHOMA
     Dosage: ON DAY 1
     Route: 065
  7. ETOPOSIDE. [Suspect]
     Active Substance: ETOPOSIDE
     Indication: PRODUCT USED FOR UNKNOWN INDICATION
     Dosage: HIGH DOSE ETOPOSIDE, ON DAY 1-3
     Route: 065
  8. CYCLOPHOSPHAMIDE. [Suspect]
     Active Substance: CYCLOPHOSPHAMIDE
     Dosage: CONDIRIONING REGIMEN FOR 3 H ON DAY -3 AND DAY -2
     Route: 065
  9. VINCRISTINE [Suspect]
     Active Substance: VINCRISTINE
     Indication: DIFFUSE LARGE B-CELL LYMPHOMA
     Dosage: ON DAY 1
     Route: 065
  10. ETOPOSIDE. [Suspect]
     Active Substance: ETOPOSIDE
     Dosage: CONDITIONING REGIMEM FOR 6-8 H, DAY -6, -5, 4
     Route: 065
  11. CARBOPLATIN. [Suspect]
     Active Substance: CARBOPLATIN
     Indication: PRODUCT USED FOR UNKNOWN INDICATION
     Dosage: CONDITIONING REGIMEN FOR 1 H, ON DAY -7, -6, -5 AND -4.
     Route: 065

REACTIONS (23)
  - Lung disorder [Unknown]
  - Liver disorder [Unknown]
  - Cystitis haemorrhagic [Unknown]
  - Alanine aminotransferase abnormal [Unknown]
  - Herpes zoster [Unknown]
  - Diarrhoea [Unknown]
  - Nausea [Unknown]
  - Vomiting [Unknown]
  - Bacterial infection [Unknown]
  - Rash [Unknown]
  - Hypoxia [Unknown]
  - Blood bilirubin abnormal [Unknown]
  - Enterovesical fistula [Unknown]
  - Febrile neutropenia [Unknown]
  - Stomatitis [Unknown]
  - Aspartate aminotransferase abnormal [Unknown]
  - Neuropathy peripheral [Unknown]
  - Abdominal pain [Unknown]
  - Hypertension [Unknown]
  - Hypotension [Unknown]
  - Dermatitis [Unknown]
  - Device related infection [Unknown]
  - Infection [Unknown]
